FAERS Safety Report 25461953 (Version 1)
Quarter: 2025Q2

REPORT INFORMATION
  Report Type: Spontaneous
  Country: US (occurrence: US)
  Receive Date: 20250620
  Receipt Date: 20250620
  Transmission Date: 20250716
  Serious: Yes (Hospitalization)
  Sender: SANOFI AVENTIS
  Company Number: US-SA-2025SA174364

PATIENT
  Age: 54 Year
  Sex: Male

DRUGS (3)
  1. DUPIXENT [Suspect]
     Active Substance: DUPILUMAB
     Indication: Pemphigoid
     Route: 058
     Dates: start: 20250218
  2. LIBTAYO [Concomitant]
     Active Substance: CEMIPLIMAB-RWLC
  3. VITAMINS [Concomitant]
     Active Substance: VITAMINS

REACTIONS (2)
  - Hospitalisation [Unknown]
  - Product use in unapproved indication [Unknown]

NARRATIVE: CASE EVENT DATE: 20250101
